FAERS Safety Report 17431157 (Version 1)
Quarter: 2020Q1

REPORT INFORMATION
  Report Type: Other
  Country: AU (occurrence: AU)
  Receive Date: 20200218
  Receipt Date: 20200218
  Transmission Date: 20200409
  Serious: Yes (Hospitalization)
  Sender: FDA-Public Use
  Company Number: AU-EMD SERONO-9147494

PATIENT
  Age: 46 Year
  Sex: Male

DRUGS (1)
  1. METFORMIN [Suspect]
     Active Substance: METFORMIN HYDROCHLORIDE
     Indication: TYPE 2 DIABETES MELLITUS

REACTIONS (6)
  - Pneumonia [Recovered/Resolved]
  - Liver abscess [Recovered/Resolved]
  - Septic shock [Recovered/Resolved]
  - Burkholderia pseudomallei infection [Recovered/Resolved]
  - Meningitis [Recovered/Resolved]
  - Multiple organ dysfunction syndrome [Unknown]
